FAERS Safety Report 9610601 (Version 2)
Quarter: 2013Q4

REPORT INFORMATION
  Report Type: Spontaneous
  Country: US (occurrence: US)
  Receive Date: 20131009
  Receipt Date: 20131115
  Transmission Date: 20140711
  Serious: Yes (Hospitalization, Other)
  Sender: FDA-Public Use
  Company Number: US-GILEAD-2013-0085077

PATIENT
  Sex: Female

DRUGS (3)
  1. LETAIRIS [Suspect]
     Indication: PULMONARY HYPERTENSION
     Dosage: 5 MG, QD
     Dates: start: 20080312
  2. LETAIRIS [Suspect]
     Indication: SCLERODERMA
  3. HYDROCHLOROTHIAZIDE [Concomitant]

REACTIONS (1)
  - Cardiac failure congestive [Unknown]
